FAERS Safety Report 8047475-7 (Version None)
Quarter: 2012Q1

REPORT INFORMATION
  Report Type: 
  Country: None (occurrence: None)
  Receive Date: 20120116
  Receipt Date: 20120105
  Transmission Date: 20120608
  Serious: Yes (Death)
  Sender: FDA-Public Use
  Company Number: PT-BAXTER-2011BH039853

PATIENT
  Age: 80 Year
  Sex: Male

DRUGS (7)
  1. PHYSIOSOL IN PLASTIC CONTAINER [Suspect]
     Route: 033
  2. PHYSIOSOL IN PLASTIC CONTAINER [Suspect]
     Route: 033
  3. PHYSIOSOL IN PLASTIC CONTAINER [Suspect]
     Indication: PERITONEAL DIALYSIS
     Route: 033
     Dates: start: 20110901
  4. PHYSIOSOL IN PLASTIC CONTAINER [Suspect]
     Route: 033
  5. PHYSIOSOL IN PLASTIC CONTAINER [Suspect]
     Route: 033
  6. EXTRANEAL [Suspect]
     Indication: PERITONEAL DIALYSIS
     Route: 033
     Dates: start: 20110901
  7. PHYSIOSOL IN PLASTIC CONTAINER [Suspect]
     Route: 033
     Dates: start: 20110901

REACTIONS (1)
  - CARDIAC ARREST [None]
